FAERS Safety Report 10404521 (Version 1)
Quarter: 2014Q2

REPORT INFORMATION
  Report Type: Spontaneous
  Country: US (occurrence: None)
  Receive Date: 20140514
  Receipt Date: 20140514
  Transmission Date: 20141212
  Serious: Yes (Hospitalization, Other)
  Sender: FDA-Public Use
  Company Number: 094766

PATIENT
  Sex: Male
  Weight: 86.2 kg

DRUGS (1)
  1. CIMZIA [Suspect]
     Indication: CROHN^S DISEASE
     Dosage: (400 MG 1X/ MONTH, SUBCUTANEOUS?(07/11/2009 TO NOT CONTINUING)

REACTIONS (1)
  - Crohn^s disease [None]
